FAERS Safety Report 8107152-0 (Version None)
Quarter: 2012Q1

REPORT INFORMATION
  Report Type: 
  Country: None (occurrence: None)
  Receive Date: 20120202
  Receipt Date: 20120123
  Transmission Date: 20120608
  Serious: Yes (Other)
  Sender: FDA-Public Use
  Company Number: JP-PFIZER INC-2011212420

PATIENT
  Age: 73 Year
  Sex: Male
  Weight: 75 kg

DRUGS (9)
  1. ALLOPURINOL [Concomitant]
     Indication: HYPERURICAEMIA
     Dosage: UNK
     Dates: start: 20040405
  2. BUP-4 [Concomitant]
     Indication: NEUROGENIC BLADDER
     Dosage: UNK
     Dates: start: 20101227
  3. OPALMON [Concomitant]
     Indication: LUMBAR SPINAL STENOSIS
     Dosage: UNK
     Dates: start: 20050916
  4. CELECOXIB [Suspect]
     Indication: OSTEOARTHRITIS
     Dosage: 100 MG, 2X/DAY
     Route: 048
     Dates: start: 20091126, end: 20110111
  5. SELBEX [Concomitant]
     Indication: GASTRITIS
     Dosage: UNK
     Dates: start: 20040405
  6. CONIEL [Concomitant]
     Indication: HYPERTENSION
     Dosage: UNK
     Dates: start: 20040114
  7. NIZATIDINE [Concomitant]
     Indication: GASTRITIS
     Dosage: UNK
     Dates: start: 20040405
  8. LOSARTAN POTASSIUM [Concomitant]
     Indication: HYPERTENSION
     Dosage: UNK
     Dates: start: 20040114, end: 20101215
  9. HYDROCHLOROTHIAZIDE [Concomitant]
     Indication: HYPERTENSION
     Dosage: UNK
     Dates: start: 20101215

REACTIONS (2)
  - CARDIAC FAILURE [None]
  - NEUROGENIC BLADDER [None]
